FAERS Safety Report 9680544 (Version 1)
Quarter: 2013Q4

REPORT INFORMATION
  Report Type: Spontaneous
  Country: US (occurrence: US)
  Receive Date: 20131111
  Receipt Date: 20131111
  Transmission Date: 20140711
  Serious: No
  Sender: FDA-Public Use
  Company Number: US-PFIZER INC-2013319600

PATIENT
  Age: 7 Year
  Sex: Male
  Weight: 38.5 kg

DRUGS (2)
  1. QUILLIVANT XR [Suspect]
     Indication: ATTENTION DEFICIT/HYPERACTIVITY DISORDER
     Dosage: 5 MG, DAILY
     Dates: start: 201310, end: 2013
  2. QUILLIVANT XR [Suspect]
     Dosage: 8 MG, DAILY
     Dates: start: 2013

REACTIONS (1)
  - Drug ineffective [Unknown]
